FAERS Safety Report 12020260 (Version 1)
Quarter: 2016Q1

REPORT INFORMATION
  Report Type: Spontaneous
  Country: JP (occurrence: JP)
  Receive Date: 20160206
  Receipt Date: 20160206
  Transmission Date: 20160526
  Serious: Yes (Hospitalization)
  Sender: FDA-Public Use
  Company Number: JP-AMGEN-JPNSP2015128000

PATIENT
  Age: 71 Year
  Sex: Female
  Weight: 40.4 kg

DRUGS (9)
  1. LEVOFOLINATE [Suspect]
     Active Substance: LEVOLEUCOVORIN CALCIUM
     Indication: RECTAL CANCER
     Dosage: UNK
     Route: 041
     Dates: start: 20150220
  2. DEXART [Concomitant]
     Active Substance: DEXAMETHASONE SODIUM PHOSPHATE
     Dosage: 6.6 MG, Q2WEEKS
     Route: 041
     Dates: start: 20150609, end: 20150828
  3. 5-FU                               /00098801/ [Suspect]
     Active Substance: FLUOROURACIL
     Dosage: 2500 MG, Q2WEEKS
     Route: 042
     Dates: start: 20150609, end: 20150828
  4. GRANISETRON                        /01178102/ [Concomitant]
     Active Substance: GRANISETRON
     Dosage: 3 MG, Q2WEEKS
     Route: 041
     Dates: start: 20150609, end: 20150828
  5. LEVOFOLINATE [Suspect]
     Active Substance: LEVOLEUCOVORIN CALCIUM
     Dosage: 200 MG, Q2WEEKS
     Route: 041
     Dates: start: 20150609, end: 20150828
  6. 5-FU                               /00098801/ [Suspect]
     Active Substance: FLUOROURACIL
     Indication: RECTAL CANCER
     Dosage: UNK
     Route: 042
     Dates: start: 20150220
  7. VECTIBIX [Suspect]
     Active Substance: PANITUMUMAB
     Indication: PRODUCT USED FOR UNKNOWN INDICATION
     Dosage: 230 MG, Q2WEEKS
     Route: 041
     Dates: start: 20150609, end: 20150828
  8. ELPLAT [Suspect]
     Active Substance: OXALIPLATIN
     Indication: RECTAL CANCER
     Dosage: UNK
     Route: 041
     Dates: start: 20150220
  9. ELPLAT [Suspect]
     Active Substance: OXALIPLATIN
     Dosage: 80 MG, Q2WEEKS
     Route: 041
     Dates: start: 20150609, end: 20150828

REACTIONS (1)
  - Skin disorder [Recovered/Resolved with Sequelae]
